FAERS Safety Report 26152141 (Version 2)
Quarter: 2025Q4

REPORT INFORMATION
  Report Type: Report from Study
  Country: US (occurrence: US)
  Receive Date: 20251214
  Receipt Date: 20251226
  Transmission Date: 20260117
  Serious: Yes (Hospitalization)
  Sender: ABBVIE
  Company Number: US-ABBVIE-6587514

PATIENT
  Age: 76 Year
  Sex: Male

DRUGS (2)
  1. VYALEV [Suspect]
     Active Substance: FOSCARBIDOPA\FOSLEVODOPA
     Indication: Parkinson^s disease
     Route: 058
     Dates: start: 20251114, end: 2025
  2. VYALEV [Suspect]
     Active Substance: FOSCARBIDOPA\FOSLEVODOPA
     Dosage: DOSES LOWERED
     Route: 058
     Dates: start: 2025, end: 202512

REACTIONS (9)
  - Gait disturbance [Unknown]
  - Fall [Unknown]
  - Dysstasia [Unknown]
  - Movement disorder [Unknown]
  - Speech disorder [Unknown]
  - Gait inability [Unknown]
  - Aphasia [Unknown]
  - Dyskinesia [Unknown]
  - Fall [Unknown]

NARRATIVE: CASE EVENT DATE: 20250101
